FAERS Safety Report 14835221 (Version 2)
Quarter: 2018Q2

REPORT INFORMATION
  Report Type: Spontaneous
  Country: GB (occurrence: GB)
  Receive Date: 20180502
  Receipt Date: 20180502
  Transmission Date: 20180711
  Serious: Yes (Hospitalization)
  Sender: FDA-Public Use
  Company Number: GB-TEVA-2018-GB-887057

PATIENT
  Age: 90 Year
  Sex: Male
  Weight: 59.2 kg

DRUGS (6)
  1. LOSARTAN POTASSIUM. [Concomitant]
     Active Substance: LOSARTAN POTASSIUM
     Route: 065
  2. CONCEPT MED SIMVASTATIN [Concomitant]
     Route: 065
  3. FUROSEMIDE. [Concomitant]
     Active Substance: FUROSEMIDE
     Route: 065
  4. AZOPT [Concomitant]
     Active Substance: BRINZOLAMIDE
     Route: 065
  5. METOCLOPRAMIDE. [Suspect]
     Active Substance: METOCLOPRAMIDE
     Indication: NAUSEA
     Dosage: 30 MILLIGRAM DAILY;
     Route: 048
     Dates: start: 20180219, end: 20180223
  6. GANFORT [Concomitant]
     Active Substance: BIMATOPROST\TIMOLOL
     Route: 065

REACTIONS (6)
  - Fluid overload [Recovering/Resolving]
  - Dysphagia [Recovering/Resolving]
  - Confusional state [Recovering/Resolving]
  - Parkinsonism [Recovering/Resolving]
  - Hypokinesia [Recovering/Resolving]
  - Drooling [Recovering/Resolving]

NARRATIVE: CASE EVENT DATE: 20180221
